FAERS Safety Report 5382693-8 (Version None)
Quarter: 2007Q3

REPORT INFORMATION
  Report Type: 
  Country: None (occurrence: None)
  Receive Date: 20070703
  Receipt Date: 20070703
  Transmission Date: 20080115
  Serious: Yes (Other)
  Sender: FDA-Public Use
  Company Number: None

PATIENT
  Sex: Female

DRUGS (1)
  1. ENBREL [Suspect]
     Indication: RHEUMATOID ARTHRITIS
     Dosage: 50MG WEEKLY SQ
     Route: 058
     Dates: start: 20060317, end: 20070627

REACTIONS (4)
  - CONTUSION [None]
  - OEDEMA PERIPHERAL [None]
  - PARAESTHESIA [None]
  - RESPIRATORY RATE INCREASED [None]
